FAERS Safety Report 24785420 (Version 1)
Quarter: 2024Q4

REPORT INFORMATION
  Report Type: Report from Study
  Country: US (occurrence: US)
  Receive Date: 20241228
  Receipt Date: 20241228
  Transmission Date: 20250115
  Serious: Yes (Hospitalization)
  Sender: ROCHE
  Company Number: US-ROCHE-10000166684

PATIENT
  Age: 84 Year
  Sex: Female

DRUGS (1)
  1. ESBRIET [Suspect]
     Active Substance: PIRFENIDONE
     Indication: Idiopathic pulmonary fibrosis
     Dosage: TAKE 3 TABLET(S) BY MOUTH IN THE MORNING AND TAKE 3 TABLET(S) BY MOUTH AT BEDTIME
     Route: 048

REACTIONS (2)
  - Off label use [Unknown]
  - Cardiac disorder [Unknown]
